FAERS Safety Report 9849489 (Version 1)
Quarter: 2014Q1

REPORT INFORMATION
  Report Type: Report from Study
  Country: BR (occurrence: BR)
  Receive Date: 20140128
  Receipt Date: 20140128
  Transmission Date: 20141002
  Serious: Yes (Other)
  Sender: FDA-Public Use
  Company Number: PHHY2014BR009958

PATIENT
  Sex: Female
  Weight: 68 kg

DRUGS (6)
  1. ACLASTA [Suspect]
     Indication: OSTEOPOROSIS
     Dosage: 5 MG, UNK
     Route: 042
     Dates: start: 2012
  2. ATENOLOL [Concomitant]
     Dosage: UNK UKN, UNK
     Dates: start: 2012
  3. AMLODIPINE [Concomitant]
     Dosage: UNK UKN, UNK
     Dates: start: 2012
  4. ISOSORBIDE [Concomitant]
     Dosage: UNK UKN, UNK
     Dates: start: 2012
  5. ASPIRINA [Concomitant]
     Dosage: UNK UKN, UNK
     Dates: start: 2012
  6. ACTONEL [Concomitant]
     Dosage: 150 MG, UNK
     Dates: start: 2013

REACTIONS (2)
  - Renal disorder [Recovering/Resolving]
  - Arterial occlusive disease [Recovering/Resolving]
